FAERS Safety Report 17226579 (Version 3)
Quarter: 2020Q1

REPORT INFORMATION
  Report Type: Spontaneous
  Country: DE (occurrence: DE)
  Receive Date: 20200102
  Receipt Date: 20200123
  Transmission Date: 20200409
  Serious: Yes (Other)
  Sender: FDA-Public Use
  Company Number: DE-BIOMARINAP-DE-2019-127645

PATIENT
  Age: 35 Year
  Sex: Male
  Weight: 76 kg

DRUGS (3)
  1. CETIRIZIN ADGC [Concomitant]
     Indication: PREMEDICATION
     Dosage: UNK
     Route: 048
     Dates: start: 20191219
  2. PALYNZIQ [Suspect]
     Active Substance: PEGVALIASE-PQPZ
     Dosage: UNK UNK, QW
     Route: 058
     Dates: start: 20191101
  3. PALYNZIQ [Suspect]
     Active Substance: PEGVALIASE-PQPZ
     Indication: PHENYLKETONURIA
     Dosage: 20 MILLIGRAM, QW
     Route: 058

REACTIONS (10)
  - Throat irritation [Recovered/Resolved]
  - Rash pruritic [Recovering/Resolving]
  - Oral discomfort [Recovered/Resolved]
  - Chest pain [Recovered/Resolved]
  - Odynophagia [Recovering/Resolving]
  - Discomfort [Recovering/Resolving]
  - Back pain [Recovering/Resolving]
  - Chest discomfort [Recovering/Resolving]
  - Throat tightness [Recovering/Resolving]
  - Rash [Recovering/Resolving]

NARRATIVE: CASE EVENT DATE: 20191120
